FAERS Safety Report 14305493 (Version 1)
Quarter: 2017Q4

REPORT INFORMATION
  Report Type: Report from Study
  Country: JP (occurrence: JP)
  Receive Date: 20171219
  Receipt Date: 20171219
  Transmission Date: 20180321
  Serious: Yes (Other)
  Sender: FDA-Public Use
  Company Number: JP-OTSUKA-BJ20090666

PATIENT
  Age: 44 Year
  Sex: Male

DRUGS (21)
  1. ARIPIPRAZOLE. [Suspect]
     Active Substance: ARIPIPRAZOLE
     Dosage: 30 MG, QD
     Route: 048
     Dates: start: 20081011, end: 20081107
  2. TASMOLIN [Concomitant]
     Active Substance: BIPERIDEN
     Indication: PRODUCT USED FOR UNKNOWN INDICATION
     Dosage: 3 MG, QD
     Route: 048
     Dates: start: 20080607, end: 20080821
  3. SEROQUEL UNK [Concomitant]
     Dosage: 200 MG, QD
     Route: 048
     Dates: start: 20080905, end: 20081030
  4. IMPROMEN BEL [Concomitant]
     Dosage: 6 MG, QD
     Route: 048
     Dates: start: 20080822, end: 20080904
  5. ARIPIPRAZOLE. [Suspect]
     Active Substance: ARIPIPRAZOLE
     Indication: SCHIZOPHRENIA
     Dosage: 10 MG, QD
     Route: 048
     Dates: start: 20080712, end: 20080715
  6. ARIPIPRAZOLE. [Suspect]
     Active Substance: ARIPIPRAZOLE
     Dosage: 24 MG, QD
     Route: 048
     Dates: start: 20080802, end: 20081010
  7. TASMOLIN [Concomitant]
     Active Substance: BIPERIDEN
     Dosage: 2 MG, QD
     Route: 048
     Dates: start: 20080822, end: 20090714
  8. ARIPIPRAZOLE. [Suspect]
     Active Substance: ARIPIPRAZOLE
     Dosage: 18 MG, QD
     Route: 048
     Dates: start: 20080716, end: 20080801
  9. ARIPIPRAZOLE. [Suspect]
     Active Substance: ARIPIPRAZOLE
     Dosage: 12 MG, QD
     Route: 048
     Dates: start: 20081108
  10. MUCOSTA TABLETS 100MG [Concomitant]
     Active Substance: REBAMIPIDE
     Indication: PRODUCT USED FOR UNKNOWN INDICATION
     Dosage: 300 MG, QD
     Route: 048
     Dates: start: 20080607
  11. SOMELIN [Concomitant]
     Active Substance: HALOXAZOLAM
     Indication: SCHIZOPHRENIA
     Dosage: 10 MG, QD
     Route: 048
     Dates: start: 20080607, end: 20080821
  12. LEXOTAN [Concomitant]
     Active Substance: BROMAZEPAM
     Indication: PRODUCT USED FOR UNKNOWN INDICATION
     Dosage: 6 MG, QD
     Route: 048
     Dates: start: 20080711, end: 20080821
  13. LEXOTAN [Concomitant]
     Active Substance: BROMAZEPAM
     Dosage: 4 MG, QD
     Route: 048
     Dates: start: 20080822, end: 20080904
  14. FLUNITRAZEPAM [Concomitant]
     Active Substance: FLUNITRAZEPAM
     Indication: SCHIZOPHRENIA
     Dosage: 2 MG, QD
     Route: 048
     Dates: start: 20070711
  15. URALYT-U [Concomitant]
     Active Substance: POTASSIUM CITRATE\TRISODIUM CITRATE DIHYDRATE
     Indication: PRODUCT USED FOR UNKNOWN INDICATION
     Dosage: 3 G, DAILY DOSE
     Route: 048
     Dates: start: 20080715
  16. EURODIN [Concomitant]
     Indication: SCHIZOPHRENIA
     Dosage: 2 MG, QD
     Route: 048
     Dates: start: 20080607, end: 20080821
  17. SEROQUEL UNK [Concomitant]
     Indication: SCHIZOPHRENIA
     Dosage: 100 MG, QD
     Route: 048
     Dates: start: 20080822, end: 20080904
  18. IMPROMEN BEL [Concomitant]
     Dosage: 3 MG, QD
     Route: 048
     Dates: start: 20080905, end: 20080911
  19. LIPITOR [Concomitant]
     Active Substance: ATORVASTATIN CALCIUM
     Indication: PRODUCT USED FOR UNKNOWN INDICATION
     Dosage: 5 MG, QD
     Route: 048
     Dates: start: 20080711
  20. MAGNESIUM OXIDE. [Concomitant]
     Active Substance: MAGNESIUM OXIDE
     Indication: PRODUCT USED FOR UNKNOWN INDICATION
     Dosage: 1 G, QD
     Route: 048
     Dates: start: 20080607
  21. IMPROMEN BEL [Concomitant]
     Indication: SCHIZOPHRENIA
     Dosage: 9 MG, QD
     Route: 048
     Dates: start: 20080607, end: 20080821

REACTIONS (2)
  - Persecutory delusion [Recovering/Resolving]
  - Restlessness [Recovering/Resolving]

NARRATIVE: CASE EVENT DATE: 20080904
